FAERS Safety Report 6491680-8 (Version None)
Quarter: 2009Q4

REPORT INFORMATION
  Report Type: 
  Country: None (occurrence: None)
  Receive Date: 20091211
  Receipt Date: 20091201
  Transmission Date: 20100525
  Serious: Yes (Hospitalization)
  Sender: FDA-Public Use
  Company Number: FR-ROCHE-670369

PATIENT
  Sex: Male

DRUGS (13)
  1. BEVACIZUMAB [Suspect]
     Dosage: 420 MG, UNK
     Route: 065
     Dates: start: 20070321, end: 20070530
  2. IRINOTECAN HCL [Suspect]
     Dosage: 520 MG, QD
     Route: 065
     Dates: start: 20070321, end: 20070530
  3. IRINOTECAN HCL [Suspect]
     Dosage: 520 MG, QD
     Route: 065
     Dates: start: 20070321, end: 20070530
  4. FLUOROURACIL [Suspect]
     Dosage: 800 MG, QD
     Route: 040
     Dates: start: 20070321, end: 20070530
  5. FLUOROURACIL [Suspect]
     Dosage: 800 MG, QD
     Route: 040
     Dates: start: 20070321, end: 20070530
  6. FLUOROURACIL [Suspect]
     Dosage: 4800 MG, QD
     Route: 040
     Dates: start: 20070321, end: 20070530
  7. FLUOROURACIL [Suspect]
     Dosage: 4800 MG, QD
     Route: 040
     Dates: start: 20070321, end: 20070530
  8. FOLINIC ACID [Suspect]
     Dosage: 800 MG, UNK
     Route: 065
     Dates: start: 20070321, end: 20070530
  9. AMLOR [Concomitant]
     Dosage: 10 MG, QD
     Route: 048
     Dates: start: 20070505
  10. HYZAAR [Concomitant]
     Dosage: UNK
     Route: 048
     Dates: start: 20070505
  11. PRAZEPAM [Concomitant]
     Indication: ANXIETY
     Dosage: 20 UNK, UNK
     Route: 048
  12. DI-ANTALVIC [Concomitant]
     Dosage: UNK
     Route: 048
  13. DI-ANTALVIC [Concomitant]

REACTIONS (2)
  - FEBRILE BONE MARROW APLASIA [None]
  - THROMBOSIS IN DEVICE [None]
